FAERS Safety Report 7291572-0 (Version None)
Quarter: 2011Q1

REPORT INFORMATION
  Report Type: 
  Country: None (occurrence: None)
  Receive Date: 20110214
  Receipt Date: 20110131
  Transmission Date: 20110831
  Serious: Yes (Death)
  Sender: FDA-Public Use
  Company Number: CA-CELGENEUS-028-21880-11020074

PATIENT
  Sex: Female

DRUGS (9)
  1. REVLIMID [Suspect]
     Indication: MULTIPLE MYELOMA
     Route: 048
     Dates: end: 20110116
  2. RABEPRAZOLE SODIUM [Concomitant]
     Route: 065
  3. DILAUDID [Concomitant]
     Route: 065
  4. ACYCLOVIR [Concomitant]
     Route: 065
  5. SENNOSIDES [Concomitant]
     Route: 065
  6. LUMIGAN [Concomitant]
     Route: 065
  7. RANITIDINE [Concomitant]
     Route: 065
  8. VITAMIN D [Concomitant]
     Route: 065
  9. LISINOPRIL [Concomitant]
     Route: 065

REACTIONS (1)
  - DEATH [None]
